FAERS Safety Report 18348053 (Version 1)
Quarter: 2020Q4

REPORT INFORMATION
  Report Type: Spontaneous
  Country: US (occurrence: US)
  Receive Date: 20201006
  Receipt Date: 20201006
  Transmission Date: 20210114
  Serious: No
  Sender: FDA-Public Use
  Company Number: US-INVENTIA-000040

PATIENT
  Sex: Male

DRUGS (4)
  1. ZYPREXA [Suspect]
     Active Substance: OLANZAPINE
     Indication: AGITATION
     Dosage: 5MG ABOUT 50% OF THE DAYS IN THE EARLY EVENING
  2. ZYPREXA [Suspect]
     Active Substance: OLANZAPINE
     Indication: IRRITABILITY
     Dosage: 5MG ABOUT 50% OF THE DAYS IN THE EARLY EVENING
  3. PALIPERIDONE. [Suspect]
     Active Substance: PALIPERIDONE
     Indication: BIPOLAR I DISORDER
     Route: 048
  4. INVEGA [Suspect]
     Active Substance: PALIPERIDONE
     Indication: BIPOLAR I DISORDER

REACTIONS (3)
  - Therapeutic product effect decreased [Unknown]
  - Product substitution issue [Unknown]
  - Unevaluable event [Unknown]
